FAERS Safety Report 8851328 (Version 1)
Quarter: 2012Q4

REPORT INFORMATION
  Report Type: 
  Country: NL (occurrence: NL)
  Receive Date: 20121022
  Receipt Date: 20121022
  Transmission Date: 20130627
  Serious: Yes (Hospitalization)
  Sender: FDA-Public Use
  Company Number: NL-MERCK-1210NLD008105

PATIENT
  Age: 55 Year
  Sex: Female
  Weight: 78 kg

DRUGS (12)
  1. ZOCOR [Suspect]
     Indication: HYPERCHOLESTEROLAEMIA
     Dosage: 40 mg, qd
     Route: 048
     Dates: start: 20000101
  2. EVEROLIMUS [Suspect]
     Indication: BREAST CANCER METASTATIC
     Dosage: 10 mg, qd
     Route: 048
     Dates: start: 20120715
  3. OMEPRAZOLE MAGNESIUM [Concomitant]
     Dosage: 20 mg, qd
     Route: 048
  4. ATENOLOL [Concomitant]
     Dosage: 25 mg, qd
     Route: 048
  5. BUMETANIDE [Concomitant]
     Dosage: 1 DF, bid
     Route: 048
  6. AMITRIPTYLINE HYDROCHLORIDE [Concomitant]
     Dosage: 25 mg, qd
     Route: 048
  7. ASPIRIN [Concomitant]
     Dosage: 80 mg, qd
     Route: 048
  8. LACTULOSE [Concomitant]
     Dosage: UNK, prn
     Route: 048
  9. OXYNORM [Concomitant]
     Dosage: 5 mg, prn
     Route: 048
  10. OXYCONTIN [Concomitant]
     Dosage: 15 mg, bid
     Route: 048
     Dates: start: 20000101
  11. EXEMESTANE [Concomitant]
     Dosage: 25 mg, qd
     Route: 048
  12. GABAPENTIN [Concomitant]
     Dosage: 900 mg, bid
     Route: 048

REACTIONS (3)
  - Mucosal inflammation [Recovering/Resolving]
  - Pyrexia [Recovering/Resolving]
  - Neutropenia [Recovering/Resolving]
